FAERS Safety Report 18184372 (Version 2)
Quarter: 2020Q4

REPORT INFORMATION
  Report Type: Spontaneous
  Country: FR (occurrence: FR)
  Receive Date: 20200824
  Receipt Date: 20201113
  Transmission Date: 20210113
  Serious: Yes (Hospitalization, Other)
  Sender: FDA-Public Use
  Company Number: FR-AUROBINDO-AUR-APL-2020-040441

PATIENT
  Age: 82 Year
  Sex: Female
  Weight: 52.9 kg

DRUGS (2)
  1. FLUOXETINE ARROW 20 MG DISPERSIBLE TABLET [Suspect]
     Active Substance: FLUOXETINE HYDROCHLORIDE
     Indication: PRODUCT USED FOR UNKNOWN INDICATION
     Dosage: 10 MILLIGRAM, ONCE A DAY
     Route: 065
  2. FLUOXETINE ARROW 20 MG DISPERSIBLE TABLET [Suspect]
     Active Substance: FLUOXETINE HYDROCHLORIDE
     Dosage: 20 MILLIGRAM, ONCE A DAY
     Route: 048

REACTIONS (1)
  - Pyramidal tract syndrome [Unknown]

NARRATIVE: CASE EVENT DATE: 202007
